FAERS Safety Report 5974747-X (Version None)
Quarter: 2008Q4

REPORT INFORMATION
  Report Type: 
  Country: None (occurrence: None)
  Receive Date: 20081201
  Receipt Date: 20081125
  Transmission Date: 20090506
  Serious: Yes (Other)
  Sender: FDA-Public Use
  Company Number: BR-PFIZER INC-2008100366

PATIENT
  Sex: Female
  Weight: 80 kg

DRUGS (4)
  1. FRONTAL [Suspect]
     Indication: ANXIETY
     Route: 048
     Dates: start: 20081001
  2. LOSARTAN POTASSIUM [Concomitant]
  3. AMLODIPINE [Concomitant]
  4. FLUOXETINE [Concomitant]
     Route: 048

REACTIONS (1)
  - BLOOD PRESSURE FLUCTUATION [None]
